FAERS Safety Report 5812584-7 (Version None)
Quarter: 2008Q3

REPORT INFORMATION
  Report Type: 
  Country: None (occurrence: None)
  Receive Date: 20080714
  Receipt Date: 20080714
  Transmission Date: 20090109
  Serious: No
  Sender: FDA-Public Use
  Company Number: None

PATIENT
  Age: 59 Year
  Sex: Female
  Weight: 73.9363 kg

DRUGS (1)
  1. CHANTIX [Suspect]
     Indication: SMOKING CESSATION THERAPY
     Dosage: AS PRESCRIBED 3 TIMES DAY PO
     Route: 048
     Dates: start: 20070601, end: 20070706

REACTIONS (3)
  - DEPRESSION [None]
  - INSOMNIA [None]
  - PERSONALITY CHANGE [None]
